FAERS Safety Report 8621813-6 (Version None)
Quarter: 2012Q3

REPORT INFORMATION
  Report Type: 
  Country: None (occurrence: None)
  Receive Date: 20120821
  Receipt Date: 20120821
  Transmission Date: 20120928
  Serious: Yes (Hospitalization, Other)
  Sender: FDA-Public Use
  Company Number: None

PATIENT
  Age: 73 Year
  Sex: Female
  Weight: 90.7194 kg

DRUGS (3)
  1. ADDERALL [Concomitant]
  2. WELLBUTRIN SR [Concomitant]
  3. ACYCLOVIR [Suspect]
     Indication: HERPES ZOSTER
     Dosage: 800 MG 5 TIMES A DAY PO
     Route: 048
     Dates: start: 20120804, end: 20120805

REACTIONS (5)
  - INCOHERENT [None]
  - HYPERSOMNIA [None]
  - HALLUCINATION [None]
  - BLOOD PRESSURE DECREASED [None]
  - RENAL FAILURE [None]
